FAERS Safety Report 6608544-9 (Version None)
Quarter: 2010Q1

REPORT INFORMATION
  Report Type: 
  Country: None (occurrence: None)
  Receive Date: 20100301
  Receipt Date: 20100131
  Transmission Date: 20100710
  Serious: No
  Sender: FDA-Public Use
  Company Number: US-BAYER-201011450BCC

PATIENT
  Sex: Female

DRUGS (1)
  1. ALEVE (CAPLET) [Suspect]
     Indication: PAIN
     Dosage: TOOK 220MG OR 440MG AT MOST PER DAY
     Route: 048
     Dates: start: 20040101

REACTIONS (2)
  - INSOMNIA [None]
  - TERMINAL INSOMNIA [None]
